FAERS Safety Report 21502851 (Version 1)
Quarter: 2022Q4

REPORT INFORMATION
  Report Type: Other
  Country: US (occurrence: US)
  Receive Date: 20221025
  Receipt Date: 20221025
  Transmission Date: 20230113
  Serious: Yes (Hospitalization, Other)
  Sender: FDA-Public Use
  Company Number: US-Covis Pharma GmbH-2022COV22010

PATIENT
  Age: 30 Year
  Sex: Female
  Weight: 79.450 kg

DRUGS (1)
  1. MAKENA [Suspect]
     Active Substance: HYDROXYPROGESTERONE CAPROATE
     Indication: Premature delivery
     Route: 058
     Dates: start: 20220830

REACTIONS (3)
  - Premature labour [Recovered/Resolved with Sequelae]
  - Shortened cervix [Recovered/Resolved with Sequelae]
  - Cervical dilatation [Recovered/Resolved with Sequelae]

NARRATIVE: CASE EVENT DATE: 20221006
